FAERS Safety Report 6133587-1 (Version None)
Quarter: 2009Q1

REPORT INFORMATION
  Report Type: 
  Country: None (occurrence: None)
  Receive Date: 20090326
  Receipt Date: 20090323
  Transmission Date: 20090719
  Serious: Yes (Death, Hospitalization)
  Sender: FDA-Public Use
  Company Number: US-CELGENEUS-163-20785-09030051

PATIENT
  Sex: Female

DRUGS (3)
  1. THALOMID [Suspect]
     Indication: SYSTEMIC LUPUS ERYTHEMATOSUS
     Route: 048
     Dates: start: 20080916, end: 20090217
  2. THALOMID [Suspect]
     Route: 048
     Dates: start: 20080820
  3. THALOMID [Suspect]
     Route: 048
     Dates: start: 20080715

REACTIONS (4)
  - ANOXIC ENCEPHALOPATHY [None]
  - BRAIN OEDEMA [None]
  - CARDIAC ARREST [None]
  - SYSTEMIC LUPUS ERYTHEMATOSUS [None]
